FAERS Safety Report 9022397 (Version 3)
Quarter: 2013Q2

REPORT INFORMATION
  Report Type: Spontaneous
  Country: US (occurrence: US)
  Receive Date: 20130118
  Receipt Date: 20130430
  Transmission Date: 20140414
  Serious: Yes (Other)
  Sender: FDA-Public Use
  Company Number: US-BAYER-2013-006460

PATIENT
  Age: 22 Year
  Sex: Female
  Weight: 63.95 kg

DRUGS (1)
  1. MIRENA [Suspect]
     Indication: CONTRACEPTION
     Dosage: 20 MCG/24HR, CONT
     Route: 015
     Dates: start: 20130110, end: 20130110

REACTIONS (7)
  - Device dislocation [Recovered/Resolved]
  - Uterine spasm [Recovered/Resolved]
  - Pelvic pain [Recovered/Resolved]
  - Nausea [None]
  - Vomiting [None]
  - Hyperhidrosis [None]
  - Procedural haemorrhage [None]
